FAERS Safety Report 4996989-2 (Version None)
Quarter: 2006Q2

REPORT INFORMATION
  Report Type: 
  Country: None (occurrence: None)
  Receive Date: 20060509
  Receipt Date: 20060404
  Transmission Date: 20061013
  Serious: Yes (Life-Threatening)
  Sender: FDA-Public Use
  Company Number: 2006AC00667

PATIENT
  Age: 92 Year
  Sex: Female

DRUGS (11)
  1. QUETIAPINE FUMARATE [Suspect]
     Indication: AGITATION
     Route: 048
  2. QUETIAPINE FUMARATE [Suspect]
     Indication: DELIRIUM
     Route: 048
  3. ALBUTEROL SULFATE AND IPRATROPIUM BROMIDE [Concomitant]
     Dosage: ALBUTEROL - 0.083% 2.5 MG/IPRATROPIUM 0.02% 2.5 ML
     Route: 055
  4. MECLIZINE [Concomitant]
  5. LOVASTATIN [Concomitant]
  6. CEFTRIAXONE [Concomitant]
  7. AZITHROMYCIN [Concomitant]
     Indication: PNEUMONIA
     Route: 048
  8. AZITHROMYCIN [Concomitant]
     Route: 048
  9. PREDNISONE TAB [Concomitant]
     Route: 048
  10. PANTOPRAZOLE [Concomitant]
     Route: 048
  11. HALOPERIDOL [Concomitant]
     Indication: AGITATION
     Route: 042

REACTIONS (6)
  - ACUTE RESPIRATORY FAILURE [None]
  - DEPRESSED LEVEL OF CONSCIOUSNESS [None]
  - HEART RATE INCREASED [None]
  - HYPOTENSION [None]
  - SINUS TACHYCARDIA [None]
  - THERAPY NON-RESPONDER [None]
